FAERS Safety Report 22305581 (Version 1)
Quarter: 2023Q2

REPORT INFORMATION
  Report Type: Spontaneous
  Country: None (occurrence: US)
  Receive Date: 20230510
  Receipt Date: 20230510
  Transmission Date: 20230721
  Serious: No
  Sender: FDA-Public Use
  Company Number: US-Vitruvias Therapeutics-2141341

PATIENT

DRUGS (1)
  1. CYANOCOBALAMIN [Suspect]
     Active Substance: CYANOCOBALAMIN

REACTIONS (8)
  - Hypersensitivity [Recovered/Resolved]
  - Swollen tongue [Recovered/Resolved]
  - Hypoaesthesia oral [Recovered/Resolved]
  - Paraesthesia oral [Recovered/Resolved]
  - Dry throat [Recovered/Resolved]
  - Dysphonia [Recovered/Resolved]
  - White blood cell count increased [None]
  - Laboratory test abnormal [None]
